FAERS Safety Report 5226303-9 (Version None)
Quarter: 2007Q1

REPORT INFORMATION
  Report Type: 
  Country: None (occurrence: None)
  Receive Date: 20070201
  Receipt Date: 20070124
  Transmission Date: 20070707
  Serious: Yes (Hospitalization)
  Sender: FDA-Public Use
  Company Number: US-ELI_LILLY_AND_COMPANY-US200606002921

PATIENT
  Age: 57 Year
  Sex: Male
  Weight: 63.492 kg

DRUGS (3)
  1. ZYPREXA [Suspect]
     Dosage: 10 MG, 2/D
     Dates: start: 20010101, end: 20031231
  2. QUETIAPINE FUMARATE [Concomitant]
     Dates: start: 20010406, end: 20020919
  3. DEPAKOTE [Concomitant]
     Dates: start: 19730101

REACTIONS (2)
  - DIABETES MELLITUS NON-INSULIN-DEPENDENT [None]
  - FOOT OPERATION [None]
